FAERS Safety Report 6385408-X (Version None)
Quarter: 2009Q4

REPORT INFORMATION
  Report Type: 
  Country: None (occurrence: None)
  Receive Date: 20091002
  Receipt Date: 20080825
  Transmission Date: 20100525
  Serious: No
  Sender: FDA-Public Use
  Company Number: US-ASTRAZENECA-2008UW17551

PATIENT
  Age: 57 Year
  Sex: Female
  Weight: 90.7 kg

DRUGS (6)
  1. ARIMIDEX [Suspect]
     Indication: BREAST CANCER
     Route: 048
  2. ZESTRIL [Concomitant]
  3. GLUCOPHAGE [Concomitant]
  4. NEURONTIN [Concomitant]
  5. TRICOR [Concomitant]
  6. SYNTHROID [Concomitant]

REACTIONS (3)
  - ARTHRALGIA [None]
  - BEDRIDDEN [None]
  - MYALGIA [None]
